FAERS Safety Report 6653685-3 (Version None)
Quarter: 2010Q1

REPORT INFORMATION
  Report Type: 
  Country: None (occurrence: None)
  Receive Date: 20100326
  Receipt Date: 20100311
  Transmission Date: 20100710
  Serious: Yes (Hospitalization)
  Sender: FDA-Public Use
  Company Number: IT-GENENTECH-299539

PATIENT
  Sex: Male

DRUGS (1)
  1. LUCENTIS [Suspect]
     Indication: MACULOPATHY
     Dosage: 0.5 MG, UNK
     Route: 031
     Dates: start: 20091104, end: 20100113

REACTIONS (3)
  - COGNITIVE DISORDER [None]
  - ISCHAEMIC STROKE [None]
  - MONOPARESIS [None]
